FAERS Safety Report 8405948-9 (Version None)
Quarter: 2012Q2

REPORT INFORMATION
  Report Type: 
  Country: None (occurrence: None)
  Receive Date: 20120529
  Receipt Date: 20010724
  Transmission Date: 20120825
  Serious: Yes (Hospitalization, Other)
  Sender: FDA-Public Use
  Company Number: 02100-JPN-01-0066

PATIENT
  Age: 60 Year
  Sex: Male

DRUGS (2)
  1. PLETAL [Suspect]
     Indication: DIABETIC FOOT
     Dosage: , ORAL
     Route: 048
     Dates: end: 20010501
  2. TCM (TRADITIONAL CHINESE MEDICINE) (CHINESE HERBAL MEDICINE) [Concomitant]

REACTIONS (4)
  - DRUG INTERACTION [None]
  - HAEMORRHAGE [None]
  - GANGRENE [None]
  - HAEMOGLOBIN DECREASED [None]
